FAERS Safety Report 11417226 (Version 1)
Quarter: 2015Q3

REPORT INFORMATION
  Report Type: Spontaneous
  Country: KR (occurrence: KR)
  Receive Date: 20150825
  Receipt Date: 20150825
  Transmission Date: 20151125
  Serious: Yes (Hospitalization)
  Sender: FDA-Public Use
  Company Number: KR-MYLANLABS-2015M1028490

PATIENT

DRUGS (1)
  1. PARACETAMOL,TRAMADOL [Suspect]
     Active Substance: ACETAMINOPHEN\TRAMADOL
     Indication: SPINAL SUBDURAL HAEMORRHAGE
     Route: 048

REACTIONS (1)
  - Myoclonus [Recovered/Resolved]
